FAERS Safety Report 7022339-6 (Version None)
Quarter: 2010Q3

REPORT INFORMATION
  Report Type: 
  Country: None (occurrence: None)
  Receive Date: 20100930
  Receipt Date: 20100928
  Transmission Date: 20110219
  Serious: Yes (Death)
  Sender: FDA-Public Use
  Company Number: TR-GENZYME-CERZ-1001237

PATIENT
  Sex: Male
  Weight: 7.9 kg

DRUGS (1)
  1. CEREZYME [Suspect]
     Indication: GAUCHER'S DISEASE
     Dosage: 50 U/KG, Q2W
     Route: 042
     Dates: start: 20090724, end: 20100208

REACTIONS (1)
  - RESPIRATORY FAILURE [None]
